FAERS Safety Report 19849035 (Version 2)
Quarter: 2021Q4

REPORT INFORMATION
  Report Type: Spontaneous
  Country: US (occurrence: US)
  Receive Date: 20210917
  Receipt Date: 20211012
  Transmission Date: 20220303
  Serious: No
  Sender: FDA-Public Use
  Company Number: NVSC2021US211885

PATIENT
  Age: 76 Year
  Sex: Male

DRUGS (1)
  1. VOLTAREN [Suspect]
     Active Substance: DICLOFENAC SODIUM
     Indication: Arthritis
     Dosage: UNK
     Route: 065
     Dates: start: 20210905, end: 20210913

REACTIONS (3)
  - Rash macular [Unknown]
  - Dry skin [Unknown]
  - Acne [Unknown]

NARRATIVE: CASE EVENT DATE: 20210913
